FAERS Safety Report 4289759-4 (Version None)
Quarter: 2004Q1

REPORT INFORMATION
  Report Type: 
  Country: None (occurrence: None)
  Receive Date: 20040209
  Receipt Date: 20040126
  Transmission Date: 20041129
  Serious: No
  Sender: FDA-Public Use
  Company Number: CIO4002073

PATIENT
  Sex: Male

DRUGS (1)
  1. VAPORUB, FORM/VERSION UNKNOWN (CEDAR LEAF OIL UNK, TURPENTINE OIL 54.4 [Suspect]
     Dosage: BEDTIME, INTRANASAL
     Route: 045
     Dates: start: 19540126

REACTIONS (2)
  - APLASTIC ANAEMIA [None]
  - MEDICATION ERROR [None]
